FAERS Safety Report 20492856 (Version 1)
Quarter: 2021Q4

REPORT INFORMATION
  Report Type: Spontaneous
  Country: ES (occurrence: None)
  Receive Date: 20211008
  Receipt Date: 20211008
  Transmission Date: 20220303
  Serious: Yes (Hospitalization, Other)
  Sender: FDA-Public Use
  Company Number: 2021A753311

PATIENT
  Age: 89 Year
  Sex: Male

DRUGS (14)
  1. ROSUVASTATIN CALCIUM [Interacting]
     Active Substance: ROSUVASTATIN CALCIUM
     Route: 048
  2. ABIRATERONE [Interacting]
     Active Substance: ABIRATERONE
     Dosage: 1000 MG
     Route: 048
  3. CETIRIZINE [Concomitant]
     Active Substance: CETIRIZINE HYDROCHLORIDE
  4. LEVOTHYROXINE [Concomitant]
     Active Substance: LEVOTHYROXINE
  5. BISOPROLOL [Concomitant]
     Active Substance: BISOPROLOL
  6. CALCIFEDIOL [Concomitant]
     Active Substance: CALCIFEDIOL
  7. HYDROCHLOROTHIAZIDE [Concomitant]
     Active Substance: HYDROCHLOROTHIAZIDE
  8. CANDESARTAN [Concomitant]
     Active Substance: CANDESARTAN
  9. DENOSUMAB [Concomitant]
     Active Substance: DENOSUMAB
  10. ASPIRIN [Concomitant]
     Active Substance: ASPIRIN
  11. TRIPTORELIN [Concomitant]
     Active Substance: TRIPTORELIN
  12. CALCIUM CARBONATE [Concomitant]
     Active Substance: CALCIUM CARBONATE
  13. OMEPRAZOLE [Concomitant]
     Active Substance: OMEPRAZOLE
  14. PREDNISONE [Concomitant]
     Active Substance: PREDNISONE

REACTIONS (5)
  - Drug interaction [Unknown]
  - Acute kidney injury [Recovering/Resolving]
  - Hepatic failure [Unknown]
  - Rhabdomyolysis [Recovered/Resolved]
  - Cardiac failure congestive [Unknown]
